FAERS Safety Report 12137577 (Version 3)
Quarter: 2016Q2

REPORT INFORMATION
  Report Type: Report from Study
  Country: US (occurrence: US)
  Receive Date: 20160302
  Receipt Date: 20160406
  Transmission Date: 20160815
  Serious: Yes (Death, Hospitalization)
  Sender: FDA-Public Use
  Company Number: US-ACTELION-A-NJ2015-129399

PATIENT
  Age: 63 Year
  Sex: Female

DRUGS (1)
  1. VELETRI [Suspect]
     Active Substance: EPOPROSTENOL
     Indication: PULMONARY HYPERTENSION
     Dosage: 16 NG/KG, PER MIN
     Route: 042
     Dates: start: 20151229

REACTIONS (5)
  - Dyspnoea [Unknown]
  - Left ventricular failure [Unknown]
  - Chest pain [Unknown]
  - Death [Fatal]
  - Pain in jaw [Unknown]

NARRATIVE: CASE EVENT DATE: 20160325
